FAERS Safety Report 10220321 (Version 1)
Quarter: 2014Q2

REPORT INFORMATION
  Report Type: Spontaneous
  Country: GB (occurrence: GB)
  Receive Date: 20140606
  Receipt Date: 20140606
  Transmission Date: 20141212
  Serious: Yes (Hospitalization)
  Sender: FDA-Public Use
  Company Number: GB-ACCORD-024083

PATIENT
  Sex: Male

DRUGS (4)
  1. SIMVASTATIN [Concomitant]
  2. FINASTERIDE [Suspect]
     Indication: PRODUCT USED FOR UNKNOWN INDICATION
     Route: 048
  3. BISOPROLOL [Concomitant]
  4. TAMSULOSIN/TAMSULOSIN HYDROCHLORIDE [Concomitant]

REACTIONS (2)
  - Peripheral swelling [Unknown]
  - Swelling face [Unknown]
